FAERS Safety Report 24456654 (Version 1)
Quarter: 2024Q4

REPORT INFORMATION
  Report Type: Report from Study
  Country: US (occurrence: US)
  Receive Date: 20241017
  Receipt Date: 20241017
  Transmission Date: 20250115
  Serious: Yes (Death)
  Sender: ABBVIE
  Company Number: US-ABBVIE-5967303

PATIENT
  Age: 77 Year
  Sex: Male

DRUGS (1)
  1. VENCLEXTA [Suspect]
     Active Substance: VENETOCLAX
     Indication: Myelodysplastic syndrome with excess blasts
     Dosage: LAST ADMIN DATE - 2024
     Route: 048
     Dates: start: 20240916

REACTIONS (1)
  - Death [Fatal]

NARRATIVE: CASE EVENT DATE: 20241011
